FAERS Safety Report 24912756 (Version 2)
Quarter: 2025Q1

REPORT INFORMATION
  Report Type: Spontaneous
  Country: JP (occurrence: JP)
  Receive Date: 20250131
  Receipt Date: 20250318
  Transmission Date: 20250409
  Serious: No
  Sender: NOVO NORDISK
  Company Number: JP-NOVOPROD-1351575

PATIENT
  Age: 6 Decade
  Sex: Male
  Weight: 90 kg

DRUGS (1)
  1. CONCIZUMAB [Suspect]
     Active Substance: CONCIZUMAB
     Indication: Factor IX deficiency
     Dosage: 18 MG, QD
     Route: 058
     Dates: start: 20241213

REACTIONS (1)
  - Fibrin D dimer increased [Unknown]

NARRATIVE: CASE EVENT DATE: 20250110
